FAERS Safety Report 26201199 (Version 1)
Quarter: 2025Q4

REPORT INFORMATION
  Report Type: Report from Study
  Country: US (occurrence: US)
  Receive Date: 20251226
  Receipt Date: 20251226
  Transmission Date: 20260118
  Serious: Yes (Other)
  Sender: JOHNSON AND JOHNSON
  Company Number: US-JNJFOC-20251228046

PATIENT
  Age: 46 Year
  Sex: Male

DRUGS (3)
  1. SPRAVATO [Suspect]
     Active Substance: ESKETAMINE
     Indication: Depression
     Dosage: ^^84 MG, 8 TOTAL DOSES^^
     Route: 045
     Dates: start: 20250703, end: 20251113
  2. SPRAVATO [Suspect]
     Active Substance: ESKETAMINE
     Dosage: ^^84 MG, 1 TOTAL DOSE^^, RECENT DOSE
     Route: 045
     Dates: start: 20251218, end: 20251218
  3. SPRAVATO [Suspect]
     Active Substance: ESKETAMINE
     Dosage: ^^56 MG, 11 TOTAL DOSES^^
     Route: 045
     Dates: start: 20250428, end: 20250626

REACTIONS (1)
  - Dissociation [Unknown]

NARRATIVE: CASE EVENT DATE: 20251218
